FAERS Safety Report 19987766 (Version 7)
Quarter: 2025Q1

REPORT INFORMATION
  Report Type: Spontaneous
  Country: US (occurrence: US)
  Receive Date: 20211022
  Receipt Date: 20250114
  Transmission Date: 20250409
  Serious: Yes (Hospitalization, Other)
  Sender: PFIZER
  Company Number: US-PFIZER INC-202101359924

PATIENT
  Age: 59 Year
  Sex: Female
  Weight: 68.04 kg

DRUGS (4)
  1. XELJANZ XR [Suspect]
     Active Substance: TOFACITINIB CITRATE
     Indication: Psoriatic arthropathy
     Dosage: 11 MG, 1X/DAY
     Route: 048
     Dates: end: 20210927
  2. XELJANZ XR [Suspect]
     Active Substance: TOFACITINIB CITRATE
     Dosage: 11 MG, 1X/DAY
     Route: 048
  3. XELJANZ XR [Suspect]
     Active Substance: TOFACITINIB CITRATE
  4. XELJANZ XR [Suspect]
     Active Substance: TOFACITINIB CITRATE
     Dosage: 11MG ONE TABLET EVERY OTHER DAY

REACTIONS (21)
  - Dehydration [Unknown]
  - Gastrointestinal haemorrhage [Not Recovered/Not Resolved]
  - Gastric ulcer [Unknown]
  - Blood iron decreased [Not Recovered/Not Resolved]
  - Chronic kidney disease [Unknown]
  - Depressed level of consciousness [Unknown]
  - Joint surgery [Unknown]
  - Therapeutic product effect incomplete [Unknown]
  - Myalgia [Unknown]
  - Bone pain [Unknown]
  - Musculoskeletal stiffness [Unknown]
  - Stress [Unknown]
  - Hypertension [Unknown]
  - C-reactive protein increased [Unknown]
  - Red blood cell sedimentation rate increased [Unknown]
  - Sinusitis [Recovered/Resolved]
  - COVID-19 [Unknown]
  - Nasopharyngitis [Recovered/Resolved]
  - Candida infection [Unknown]
  - Dry mouth [Not Recovered/Not Resolved]
  - Off label use [Unknown]

NARRATIVE: CASE EVENT DATE: 20210601
